FAERS Safety Report 7804200-X (Version None)
Quarter: 2011Q4

REPORT INFORMATION
  Report Type: 
  Country: None (occurrence: None)
  Receive Date: 20111010
  Receipt Date: 20110929
  Transmission Date: 20120403
  Serious: Yes (Hospitalization)
  Sender: FDA-Public Use
  Company Number: NL-SANOFI-AVENTIS-2011SA044113

PATIENT
  Age: 68 Year
  Sex: Female
  Weight: 78 kg

DRUGS (15)
  1. DRONEDARONE HCL [Suspect]
     Indication: ATRIAL FIBRILLATION
     Route: 048
     Dates: start: 20110415
  2. BUMETANIDE [Concomitant]
     Route: 065
  3. CLOPIDOGREL [Concomitant]
     Route: 065
  4. CRESTOR [Concomitant]
     Route: 065
  5. CICLESONIDE [Concomitant]
  6. MONOCEDOCARD [Concomitant]
  7. BUMETANIDE [Concomitant]
     Route: 065
     Dates: start: 20110504, end: 20110518
  8. IRBESARTAN [Concomitant]
  9. SINTROM [Concomitant]
     Route: 065
  10. IRBESARTAN [Concomitant]
     Route: 065
  11. AMLODIPINE [Concomitant]
     Route: 065
     Dates: start: 20110510, end: 20110518
  12. RANITIDINE [Concomitant]
  13. DOXAZOSIN MESYLATE [Concomitant]
     Route: 065
     Dates: end: 20110518
  14. AMOXICILLIN AND CLAVULANATE POTASSIUM [Concomitant]
     Route: 065
     Dates: start: 20110509, end: 20110519
  15. METOPROLOL TARTRATE [Concomitant]
     Route: 065

REACTIONS (6)
  - PYREXIA [None]
  - INTERNATIONAL NORMALISED RATIO INCREASED [None]
  - VERTIGO [None]
  - FALL [None]
  - CHRONIC OBSTRUCTIVE PULMONARY DISEASE [None]
  - CARDIAC FAILURE [None]
